FAERS Safety Report 6836394-7 (Version None)
Quarter: 2010Q3

REPORT INFORMATION
  Report Type: 
  Country: None (occurrence: None)
  Receive Date: 20100713
  Receipt Date: 20100702
  Transmission Date: 20110219
  Serious: Yes (Death)
  Sender: FDA-Public Use
  Company Number: US-BAXTER-2010BH017838

PATIENT
  Sex: Female

DRUGS (1)
  1. DIANEAL [Suspect]
     Indication: PERITONEAL DIALYSIS
     Route: 033
     Dates: end: 20100604

REACTIONS (4)
  - CARDIAC DISORDER [None]
  - CARDIAC FAILURE [None]
  - MYOCARDIAL INFARCTION [None]
  - SEPSIS [None]
